FAERS Safety Report 21786341 (Version 1)
Quarter: 2022Q4

REPORT INFORMATION
  Report Type: Spontaneous
  Country: GB (occurrence: GB)
  Receive Date: 20221228
  Receipt Date: 20221228
  Transmission Date: 20230113
  Serious: Yes (Other)
  Sender: FDA-Public Use
  Company Number: GB-MYLANLABS-2021M1095440

PATIENT
  Age: 40 Year
  Sex: Female

DRUGS (2)
  1. EMTRICITABINE\TENOFOVIR [Suspect]
     Active Substance: EMTRICITABINE\TENOFOVIR
     Indication: HIV infection
     Dosage: 1 DOSAGE FORM, ONCE A DAY(1 DOSAGE FORM, QD)
     Route: 048
  2. RALTEGRAVIR [Concomitant]
     Active Substance: RALTEGRAVIR
     Indication: Product used for unknown indication
     Dosage: 800 MILLIGRAM, ONCE A DAY(800 MILLIGRAM, QD)
     Route: 048

REACTIONS (2)
  - Trisomy 21 [Unknown]
  - Maternal exposure during pregnancy [Recovered/Resolved]
